FAERS Safety Report 4294987-8 (Version None)
Quarter: 2004Q1

REPORT INFORMATION
  Report Type: 
  Country: None (occurrence: None)
  Receive Date: 20040216
  Receipt Date: 20040209
  Transmission Date: 20041129
  Serious: Yes (Other)
  Sender: FDA-Public Use
  Company Number: 200410322JP

PATIENT
  Age: 36 Year
  Sex: Male

DRUGS (3)
  1. ALLEGRA [Suspect]
     Indication: SEASONAL ALLERGY
  2. VOLTAREN [Concomitant]
  3. MUCOSTA [Concomitant]

REACTIONS (3)
  - ALANINE AMINOTRANSFERASE INCREASED [None]
  - ANOREXIA [None]
  - ASPARTATE AMINOTRANSFERASE INCREASED [None]
